FAERS Safety Report 5900549-6 (Version None)
Quarter: 2008Q3

REPORT INFORMATION
  Report Type: 
  Country: None (occurrence: None)
  Receive Date: 20080926
  Receipt Date: 20080912
  Transmission Date: 20090109
  Serious: Yes (Hospitalization)
  Sender: FDA-Public Use
  Company Number: FR-B.I. PHARMACEUTICALS,INC./RIDGEFIELD-2008-BP-11981YA

PATIENT
  Age: 75 Year
  Sex: Male

DRUGS (5)
  1. OMIX L.P. [Suspect]
     Dosage: .4MG
     Route: 048
  2. ARICEPT [Suspect]
     Route: 048
  3. KARDEGIC [Suspect]
     Route: 048
  4. EBIXA [Suspect]
     Dosage: 20MG
     Route: 048
  5. FONZYLANE [Suspect]
     Dosage: 300MG
     Route: 048
     Dates: end: 20080513

REACTIONS (1)
  - GRAND MAL CONVULSION [None]
